FAERS Safety Report 7513465-3 (Version None)
Quarter: 2011Q2

REPORT INFORMATION
  Report Type: 
  Country: None (occurrence: None)
  Receive Date: 20110531
  Receipt Date: 20110517
  Transmission Date: 20111010
  Serious: Yes (Hospitalization, Other)
  Sender: FDA-Public Use
  Company Number: FR-JNJFOC-20110503802

PATIENT
  Sex: Male
  Weight: 58 kg

DRUGS (5)
  1. COVERAM [Concomitant]
     Indication: HYPERTENSION
     Route: 048
  2. ABIRATERONE [Suspect]
     Indication: PROSTATE CANCER METASTATIC
     Route: 048
     Dates: start: 20110414, end: 20110504
  3. PREDNISOLONE [Suspect]
     Indication: PROSTATE CANCER
     Route: 065
  4. ABIRATERONE [Suspect]
     Route: 048
  5. RADIOTHERAPY [Suspect]
     Indication: PROSTATE CANCER METASTATIC
     Route: 065

REACTIONS (3)
  - HYPOKALAEMIA [None]
  - WEIGHT DECREASED [None]
  - OESOPHAGITIS [None]
